FAERS Safety Report 18590354 (Version 1)
Quarter: 2020Q4

REPORT INFORMATION
  Report Type: Spontaneous
  Country: SE (occurrence: SE)
  Receive Date: 20201208
  Receipt Date: 20201208
  Transmission Date: 20210114
  Serious: Yes (Disabling)
  Sender: FDA-Public Use
  Company Number: SE-TEVA-2020-SE-1855694

PATIENT
  Age: 54 Year
  Sex: Female
  Weight: 58 kg

DRUGS (1)
  1. AJOVY [Suspect]
     Active Substance: FREMANEZUMAB-VFRM
     Indication: MIGRAINE
     Dosage: ^70 ML^
     Dates: start: 20200418, end: 20201025

REACTIONS (2)
  - Female orgasmic disorder [Not Recovered/Not Resolved]
  - Libido disorder [Not Recovered/Not Resolved]

NARRATIVE: CASE EVENT DATE: 20200501
